FAERS Safety Report 20654947 (Version 1)
Quarter: 2022Q1

REPORT INFORMATION
  Report Type: Spontaneous
  Country: US (occurrence: US)
  Receive Date: 20220330
  Receipt Date: 20220330
  Transmission Date: 20220423
  Serious: No
  Sender: FDA-Public Use
  Company Number: US-CYCLE PHARMACEUTICALS LTD-2022-CYC-000005

PATIENT

DRUGS (2)
  1. NITYR [Suspect]
     Active Substance: NITISINONE
     Indication: Illness
     Dosage: 1 TABLET IN THE MORNING
     Route: 065
     Dates: end: 202202
  2. NITYR [Suspect]
     Active Substance: NITISINONE
     Indication: Illness
     Dosage: 1 TABLET IN THE MORNING AND 2 TABLEST IN THE EVENING
     Route: 065
     Dates: end: 202202

REACTIONS (1)
  - Product dose omission issue [Unknown]

NARRATIVE: CASE EVENT DATE: 20220201
